FAERS Safety Report 7689312-6 (Version None)
Quarter: 2011Q3

REPORT INFORMATION
  Report Type: 
  Country: None (occurrence: None)
  Receive Date: 20110817
  Receipt Date: 20110809
  Transmission Date: 20111222
  Serious: Yes (Hospitalization, Other)
  Sender: FDA-Public Use
  Company Number: US-BAYER-2011-030570

PATIENT
  Age: 20 Year
  Sex: Female
  Weight: 52.154 kg

DRUGS (4)
  1. YASMIN [Suspect]
     Indication: DYSMENORRHOEA
  2. DIFLUCAN [Concomitant]
     Dosage: 150 MG, UNK
  3. ZOLOFT [Concomitant]
     Indication: ANXIETY DISORDER
     Dosage: 50 MG, QD
     Route: 048
     Dates: start: 20061209
  4. YASMIN [Suspect]
     Indication: MENORRHAGIA
     Dosage: UNK
     Dates: start: 20050701, end: 20070401

REACTIONS (6)
  - DEEP VEIN THROMBOSIS [None]
  - GROIN PAIN [None]
  - DYSPNOEA [None]
  - PULMONARY EMBOLISM [None]
  - ANXIETY [None]
  - INSOMNIA [None]
